FAERS Safety Report 5860454-0 (Version None)
Quarter: 2008Q3

REPORT INFORMATION
  Report Type: 
  Country: None (occurrence: None)
  Receive Date: 20080827
  Receipt Date: 20080122
  Transmission Date: 20090109
  Serious: No
  Sender: FDA-Public Use
  Company Number: US-ABBOTT-07P-163-0417513-00

PATIENT
  Sex: Male
  Weight: 100 kg

DRUGS (9)
  1. COATED PDS [Suspect]
     Indication: BLOOD TRIGLYCERIDES INCREASED
     Route: 048
     Dates: start: 20070801, end: 20070917
  2. BUPROPION HCL [Concomitant]
     Indication: SMOKING CESSATION THERAPY
     Route: 048
  3. GABOPANTINE [Concomitant]
     Indication: HYPOAESTHESIA
     Route: 048
  4. LISINOPRIL [Concomitant]
     Indication: HYPERTENSION
     Route: 048
  5. ACETYLSALICYLIC ACID SRT [Concomitant]
     Indication: PROPHYLAXIS
     Dosage: X2
     Route: 048
     Dates: start: 20070801, end: 20070917
  6. ACETYLSALICYLIC ACID SRT [Concomitant]
     Indication: FLUSHING
  7. MIRTAZAPINE [Concomitant]
     Indication: PANIC ATTACK
     Route: 048
  8. PROPACET 100 [Concomitant]
     Indication: ARTHRITIS
     Route: 048
  9. LANSOPRAZOLE [Concomitant]
     Indication: GASTROOESOPHAGEAL REFLUX DISEASE
     Route: 048

REACTIONS (4)
  - FLUSHING [None]
  - LIP SWELLING [None]
  - PAIN OF SKIN [None]
  - PRURITUS [None]
